FAERS Safety Report 4966018-5 (Version None)
Quarter: 2006Q2

REPORT INFORMATION
  Report Type: 
  Country: None (occurrence: None)
  Receive Date: 20060407
  Receipt Date: 20060307
  Transmission Date: 20061013
  Serious: Yes (Disabling)
  Sender: FDA-Public Use
  Company Number: BE-GLAXOSMITHKLINE-B0415832A

PATIENT
  Age: 31 Year
  Sex: Male
  Weight: 59 kg

DRUGS (1)
  1. ZYBAN [Suspect]
     Indication: SMOKING CESSATION THERAPY
     Dosage: 300MG PER DAY
     Route: 048
     Dates: start: 20060225, end: 20060312

REACTIONS (5)
  - ARTHRALGIA [None]
  - CHEST PAIN [None]
  - LYMPHADENOPATHY [None]
  - PYREXIA [None]
  - URTICARIA [None]
